FAERS Safety Report 11898381 (Version 3)
Quarter: 2016Q2

REPORT INFORMATION
  Report Type: Spontaneous
  Country: US (occurrence: US)
  Receive Date: 20160108
  Receipt Date: 20160415
  Transmission Date: 20160815
  Serious: Yes (Other)
  Sender: FDA-Public Use
  Company Number: US-ASTELLAS-2015US042379

PATIENT
  Sex: Male

DRUGS (3)
  1. XTANDI [Suspect]
     Active Substance: ENZALUTAMIDE
     Dosage: DECREASED DOSE, UNKNOWN FREQ.
     Route: 065
  2. XTANDI [Suspect]
     Active Substance: ENZALUTAMIDE
     Dosage: 160 MG, ONCE DAILY BY MOUTH
     Route: 048
  3. XTANDI [Suspect]
     Active Substance: ENZALUTAMIDE
     Indication: PROSTATE CANCER
     Route: 048
     Dates: start: 20151017

REACTIONS (6)
  - Gout [Unknown]
  - Peripheral swelling [Recovering/Resolving]
  - Paraesthesia [Unknown]
  - Muscular weakness [Unknown]
  - Fatigue [Not Recovered/Not Resolved]
  - Blood urine present [Recovered/Resolved]
